FAERS Safety Report 16557859 (Version 1)
Quarter: 2019Q3

REPORT INFORMATION
  Report Type: Spontaneous
  Country: US (occurrence: US)
  Receive Date: 20190529
  Receipt Date: 20190529
  Transmission Date: 20191004
  Serious: Yes (Hospitalization)
  Sender: FDA-Public Use
  Company Number: None

PATIENT
  Age: 60 Year
  Sex: Female

DRUGS (13)
  1. PREDNISONE. [Concomitant]
     Active Substance: PREDNISONE
  2. MYCOPHENOLATE [Concomitant]
     Active Substance: MYCOPHENOLIC ACID
  3. SENSIPAR [Concomitant]
     Active Substance: CINACALCET HYDROCHLORIDE
  4. ENVARSUS XR [Suspect]
     Active Substance: TACROLIMUS
     Indication: HYPERPARATHYROIDISM
     Dosage: ?          OTHER DOSE:3 TABLETS;?
     Route: 048
     Dates: start: 20171207
  5. VITAMIN B12 [Concomitant]
     Active Substance: CYANOCOBALAMIN
  6. FAMOTIDINE. [Concomitant]
     Active Substance: FAMOTIDINE
  7. TEMAZEPAM. [Concomitant]
     Active Substance: TEMAZEPAM
  8. ULERIC [Concomitant]
  9. CRANBERRY CAP [Concomitant]
  10. METOPROL TAR [Concomitant]
  11. VITAMIN D3 [Concomitant]
     Active Substance: CHOLECALCIFEROL
  12. CIPROFLOXACN [Concomitant]
     Active Substance: CIPROFLOXACIN
  13. FUROSEMIDE. [Concomitant]
     Active Substance: FUROSEMIDE

REACTIONS (3)
  - Vomiting [None]
  - Infection [None]
  - Therapy cessation [None]

NARRATIVE: CASE EVENT DATE: 201904
